FAERS Safety Report 23478039 (Version 1)
Quarter: 2024Q1

REPORT INFORMATION
  Report Type: Report from Study
  Country: US (occurrence: US)
  Receive Date: 20240204
  Receipt Date: 20240204
  Transmission Date: 20240409
  Serious: No
  Sender: FDA-Public Use
  Company Number: US-ACADIA PHARMACEUTICALS INC.-ACA-2024-PIM-000130

PATIENT
  Sex: Female

DRUGS (20)
  1. NUPLAZID [Suspect]
     Active Substance: PIMAVANSERIN TARTRATE
     Indication: Parkinson^s disease
     Dosage: 34 MILLIGRAM, QD
     Route: 048
     Dates: start: 20231122
  2. CARBIDOPA\LEVODOPA [Concomitant]
     Active Substance: CARBIDOPA\LEVODOPA
     Dosage: 25-100MG
  3. CARBIDOPA\LEVODOPA [Concomitant]
     Active Substance: CARBIDOPA\LEVODOPA
     Dosage: 50-200MG
  4. CLARITIN [Concomitant]
     Active Substance: LORATADINE
     Dosage: 10 MILLIGRAM
  5. FLONASE ALLERGY RELIEF [Concomitant]
     Active Substance: FLUTICASONE PROPIONATE
     Dosage: SPRAY 50MCG
  6. GABAPENTIN [Concomitant]
     Active Substance: GABAPENTIN
     Dosage: 100 MILLIGRAM
  7. DEXTROSE [Concomitant]
     Active Substance: DEXTROSE\DEXTROSE MONOHYDRATE
     Dosage: 4 GRAM
  8. HUMALOG [Concomitant]
     Active Substance: INSULIN LISPRO
     Dosage: 100/ML
  9. LANTUS SOLOSTAR [Concomitant]
     Active Substance: INSULIN GLARGINE
     Dosage: 100/ML
  10. LIDODERM [Concomitant]
     Active Substance: LIDOCAINE
     Dosage: 5%
  11. MAALOX MAX [Concomitant]
     Active Substance: ALUMINUM HYDROXIDE\DIMETHICONE\MAGNESIUM HYDROXIDE
  12. NOVOLOG [Concomitant]
     Active Substance: INSULIN ASPART
  13. OMEGA-3 ACIDS [Concomitant]
     Active Substance: OMEGA-3 FATTY ACIDS
     Dosage: 1000 MILLIGRAM
  14. ONDANSETRON [Concomitant]
     Active Substance: ONDANSETRON
     Dosage: 8 MILLIGRAM
  15. PANTOPRAZOLE [Concomitant]
     Active Substance: PANTOPRAZOLE
     Dosage: 40 MILLIGRAM
  16. PLAVIX [Concomitant]
     Active Substance: CLOPIDOGREL BISULFATE
     Dosage: 75 MILLIGRAM
  17. SYSTANE HYDRATION PF PRESERVATIVE FREE [Concomitant]
     Active Substance: POLYETHYLENE GLYCOL 400\PROPYLENE GLYCOL
     Dosage: 0.4-0.3%
  18. TRAMADOL HCL [Concomitant]
     Active Substance: TRAMADOL HYDROCHLORIDE
     Dosage: 50 MILLIGRAM
  19. TYLENOL [Concomitant]
     Active Substance: ACETAMINOPHEN
     Dosage: 325 MILLIGRAM
  20. DIAZEPAM [Concomitant]
     Active Substance: DIAZEPAM
     Dosage: 5 MILLIGRAM

REACTIONS (3)
  - Condition aggravated [Not Recovered/Not Resolved]
  - Confusional state [Not Recovered/Not Resolved]
  - Gait disturbance [Not Recovered/Not Resolved]
